FAERS Safety Report 5754093-X (Version None)
Quarter: 2008Q2

REPORT INFORMATION
  Report Type: 
  Country: None (occurrence: None)
  Receive Date: 20080530
  Receipt Date: 20080527
  Transmission Date: 20081010
  Serious: Yes (Hospitalization)
  Sender: FDA-Public Use
  Company Number: PHBS2007BR16035

PATIENT
  Age: 26 Year
  Sex: Female

DRUGS (6)
  1. TEGRETOL [Suspect]
     Indication: BIPOLAR DISORDER
     Dosage: 200 MG, QHS
     Route: 048
     Dates: end: 20071201
  2. TEGRETOL [Suspect]
     Indication: DEPRESSION
     Dosage: 400 MG, QHS
     Route: 048
  3. TEGRETOL [Suspect]
     Dosage: 200 MG, BID
     Route: 048
  4. RIVOTRIL [Concomitant]
     Indication: DEPRESSION
     Dosage: 5 DRP, TID
     Route: 048
  5. FLUOXETINE HCL [Concomitant]
     Dosage: 2 DF, BID
  6. MELLARIL [Concomitant]

REACTIONS (3)
  - DEPRESSION [None]
  - ROAD TRAFFIC ACCIDENT [None]
  - SOMNOLENCE [None]
